FAERS Safety Report 9026786 (Version 1)
Quarter: 2013Q1

REPORT INFORMATION
  Report Type: Spontaneous
  Country: US (occurrence: US)
  Receive Date: 20130123
  Receipt Date: 20130123
  Transmission Date: 20140127
  Serious: Yes (Other)
  Sender: FDA-Public Use
  Company Number: US-ASTELLAS-2013US000739

PATIENT
  Age: 87 Year
  Sex: Male

DRUGS (1)
  1. XTANDI [Suspect]
     Indication: PROSTATE CANCER
     Dosage: 160 MG, UID/QD
     Route: 048
     Dates: start: 20121224, end: 20130115

REACTIONS (10)
  - Migraine [Unknown]
  - Visual impairment [Unknown]
  - Decreased appetite [Unknown]
  - Abnormal dreams [Unknown]
  - Lethargy [Unknown]
  - Cognitive disorder [Unknown]
  - Anxiety [Unknown]
  - Mental impairment [Unknown]
  - Hallucination [Unknown]
  - Diarrhoea [Unknown]
